FAERS Safety Report 5627646-7 (Version None)
Quarter: 2008Q1

REPORT INFORMATION
  Report Type: 
  Country: None (occurrence: None)
  Receive Date: 20080215
  Receipt Date: 20080205
  Transmission Date: 20080703
  Serious: Yes (Hospitalization, Other)
  Sender: FDA-Public Use
  Company Number: DE-BAYER-200812897GPV

PATIENT
  Age: 69 Year
  Sex: Male

DRUGS (3)
  1. APROTININ [Suspect]
     Indication: HAEMORRHAGE
     Route: 042
  2. APROTININ [Suspect]
     Route: 042
  3. FIBRINOGEN [Concomitant]
     Indication: HYPOCOAGULABLE STATE
     Route: 065

REACTIONS (6)
  - ANURIA [None]
  - LIVEDO RETICULARIS [None]
  - SKIN DISCOLOURATION [None]
  - THROMBOCYTOPENIA [None]
  - THROMBOSIS [None]
  - THROMBOTIC MICROANGIOPATHY [None]
